FAERS Safety Report 10170073 (Version 1)
Quarter: 2014Q2

REPORT INFORMATION
  Report Type: Spontaneous
  Country: PL (occurrence: PL)
  Receive Date: 20140513
  Receipt Date: 20140513
  Transmission Date: 20141212
  Serious: Yes (Other)
  Sender: FDA-Public Use
  Company Number: PL-BAYER-2014-069179

PATIENT
  Age: 56 Year
  Sex: Female
  Weight: 75 kg

DRUGS (1)
  1. ULTRAVIST [Suspect]
     Indication: COMPUTERISED TOMOGRAM
     Dosage: 80 ML, UNK
     Route: 042
     Dates: start: 20140121, end: 20140121

REACTIONS (5)
  - Vomiting [Unknown]
  - Pallor [Unknown]
  - Ocular hyperaemia [Unknown]
  - Blood pressure decreased [Unknown]
  - Exophthalmos [Unknown]
